FAERS Safety Report 9315502 (Version 3)
Quarter: 2013Q3

REPORT INFORMATION
  Report Type: Report from Study
  Country: US (occurrence: US)
  Receive Date: 20130529
  Receipt Date: 20130703
  Transmission Date: 20140515
  Serious: Yes (Hospitalization)
  Sender: FDA-Public Use
  Company Number: US-ACTELION-A-US2013-82008

PATIENT
  Age: 42 Year
  Sex: Female

DRUGS (19)
  1. VELETRI [Suspect]
     Indication: PULMONARY ARTERIAL HYPERTENSION
     Dosage: 60 NG/KG, PER MIN
     Route: 042
     Dates: start: 20130410
  2. TRACLEER [Suspect]
     Indication: PULMONARY ARTERIAL HYPERTENSION
     Dosage: UNK
     Route: 048
  3. FLOLAN [Suspect]
     Dosage: UNK
     Route: 042
     Dates: start: 200505, end: 20130410
  4. COUMADIN [Concomitant]
  5. LASIX [Concomitant]
  6. LIPITOR [Concomitant]
  7. ZESTRIL [Concomitant]
  8. ULTRAM [Concomitant]
  9. CLARITIN [Concomitant]
  10. IRON [Concomitant]
  11. POTASSIUM [Concomitant]
  12. PRILOSEC [Concomitant]
  13. NEURONTIN [Concomitant]
  14. ELAVIL [Concomitant]
  15. ALBUTEROL [Concomitant]
  16. ATROVENT [Concomitant]
  17. NEXIUM [Concomitant]
  18. ALDACTONE [Concomitant]
  19. MAGNESIUM OXIDE [Concomitant]

REACTIONS (11)
  - Urinary tract infection [Recovered/Resolved]
  - Sepsis [Recovered/Resolved]
  - Enterobacter infection [Recovered/Resolved]
  - Klebsiella infection [Recovered/Resolved]
  - Dysuria [Recovered/Resolved]
  - Haematuria [Recovered/Resolved]
  - Pyrexia [Recovered/Resolved]
  - Pulmonary arterial hypertension [Not Recovered/Not Resolved]
  - Device related infection [Recovered/Resolved]
  - Blood culture positive [Recovered/Resolved]
  - Chills [Recovered/Resolved]
